FAERS Safety Report 7824422-1 (Version None)
Quarter: 2011Q4

REPORT INFORMATION
  Report Type: 
  Country: None (occurrence: None)
  Receive Date: 20111019
  Receipt Date: 20111012
  Transmission Date: 20120403
  Serious: Yes (Other)
  Sender: FDA-Public Use
  Company Number: RU-BAYER-2011-099497

PATIENT
  Age: 21 Year

DRUGS (3)
  1. SORAFENIB [Suspect]
     Indication: HEPATIC NEOPLASM MALIGNANT
     Route: 048
  2. ANTITHROMBOTIC AGENTS [Concomitant]
  3. ASPIRIN [Concomitant]

REACTIONS (4)
  - HYPERCOAGULATION [None]
  - PARESIS [None]
  - APHASIA [None]
  - CEREBRAL ISCHAEMIA [None]
